FAERS Safety Report 9820821 (Version 1)
Quarter: 2013Q4

REPORT INFORMATION
  Report Type: Spontaneous
  Country: US (occurrence: None)
  Receive Date: 20131028
  Receipt Date: 20131028
  Transmission Date: 20140711
  Serious: Yes (Other)
  Sender: FDA-Public Use
  Company Number: 2013US001466

PATIENT
  Age: 62 Year
  Sex: Male
  Weight: 95 kg

DRUGS (8)
  1. ICLUSIG [Suspect]
     Indication: CHRONIC MYELOID LEUKAEMIA
     Route: 048
     Dates: start: 20130402, end: 20130407
  2. VITAMIN E (VITAMIN E) [Concomitant]
  3. VITAMIN B12 (COBAMAMIDE) [Concomitant]
  4. MULTIVITAMIN (VITAMINS NOS0 [Concomitant]
  5. ZANTAC (RANITIDINE HYDROCHLORIDE) [Concomitant]
  6. FISH OIL (FISH OIL) [Concomitant]
  7. TYLENOL (PARACETAMOL) [Concomitant]
  8. IBUPROFEN (IBUPROFEN) [Concomitant]

REACTIONS (1)
  - Hypersensitivity [None]
